FAERS Safety Report 7064772-2 (Version None)
Quarter: 2010Q4

REPORT INFORMATION
  Report Type: 
  Country: None (occurrence: None)
  Receive Date: 20101027
  Receipt Date: 19810423
  Transmission Date: 20110411
  Serious: Yes (Death, Other)
  Sender: FDA-Public Use
  Company Number: US-ROCHE-810200025001

PATIENT

DRUGS (4)
  1. VALIUM [Suspect]
     Route: 048
  2. MARPLAN TABLETS [Suspect]
     Route: 065
  3. UNIDENTIFIED DRUGS [Suspect]
     Route: 065
  4. TRICYCLIC ANTIDEPRESSANT (TCAD) [Suspect]
     Route: 065

REACTIONS (3)
  - DEATH [None]
  - HYPERPYREXIA [None]
  - MULTIPLE DRUG OVERDOSE [None]
